FAERS Safety Report 5728382-9 (Version None)
Quarter: 2008Q2

REPORT INFORMATION
  Report Type: 
  Country: None (occurrence: None)
  Receive Date: 20080506
  Receipt Date: 20080428
  Transmission Date: 20081010
  Serious: Yes (Other)
  Sender: FDA-Public Use
  Company Number: PHEH2008US03332

PATIENT
  Age: 55 Year
  Sex: Male
  Weight: 111.11 kg

DRUGS (6)
  1. ZOMETA [Suspect]
     Indication: MULTIPLE MYELOMA
     Dosage: 4 MG, QMO
     Route: 042
     Dates: start: 20070316, end: 20071107
  2. REVLIMID [Suspect]
     Indication: MULTIPLE MYELOMA
     Dosage: 25MG QD 21 OF 28 DAYS
     Route: 048
     Dates: start: 20070611, end: 20080227
  3. DEXAMETHASONE [Concomitant]
     Indication: MULTIPLE MYELOMA
     Dosage: 40 MG Q 7 DAYS
     Route: 048
     Dates: start: 20070611
  4. LISINOPRIL [Concomitant]
     Indication: HYPERTENSION
     Dosage: 10 MG, QD
     Route: 048
  5. JANUVIA [Concomitant]
     Indication: DIABETES MELLITUS
     Dosage: 100 MG, QD
     Route: 048
  6. DARVOCET-N [Concomitant]
     Indication: PAIN
     Dosage: 100 Q 4-6 HOURS
     Route: 048

REACTIONS (5)
  - DRUG HYPERSENSITIVITY [None]
  - GINGIVAL INFECTION [None]
  - GINGIVAL RECESSION [None]
  - OSTEONECROSIS [None]
  - PAIN IN JAW [None]
